FAERS Safety Report 5850965-6 (Version None)
Quarter: 2008Q3

REPORT INFORMATION
  Report Type: 
  Country: None (occurrence: None)
  Receive Date: 20080820
  Receipt Date: 20080818
  Transmission Date: 20090109
  Serious: Yes (Life-Threatening, Hospitalization)
  Sender: FDA-Public Use
  Company Number: ES-ASTRAZENECA-2008AC02207

PATIENT
  Age: 85 Year
  Sex: Female

DRUGS (9)
  1. ATACAND HCT [Suspect]
     Indication: HYPERTENSION
     Dosage: 16/12.5MG
     Route: 048
     Dates: start: 19980101, end: 20080615
  2. FLUOXETINE [Suspect]
     Indication: DEPRESSED MOOD
     Route: 048
     Dates: start: 20080606, end: 20080615
  3. AMERIDE [Suspect]
     Indication: HYPERTENSION
     Dosage: 5/50MG
     Route: 048
     Dates: start: 19980101, end: 20080615
  4. ALOPURINOL [Concomitant]
     Route: 048
     Dates: start: 19980101
  5. ASPIRIN [Concomitant]
     Route: 048
  6. AMARYL [Concomitant]
     Indication: TYPE 2 DIABETES MELLITUS
     Route: 048
     Dates: start: 19980101
  7. METFORMIN HCL [Concomitant]
     Indication: TYPE 2 DIABETES MELLITUS
     Route: 048
     Dates: start: 19980101
  8. DIASTABOL [Concomitant]
     Indication: TYPE 2 DIABETES MELLITUS
     Route: 048
     Dates: start: 19980101
  9. LERZAM [Concomitant]
     Indication: HYPERTENSION
     Route: 048
     Dates: start: 19980101

REACTIONS (3)
  - HYPONATRAEMIA [None]
  - LOSS OF CONSCIOUSNESS [None]
  - TRAUMATIC BRAIN INJURY [None]
